FAERS Safety Report 8359438-2 (Version None)
Quarter: 2012Q2

REPORT INFORMATION
  Report Type: 
  Country: None (occurrence: None)
  Receive Date: 20120514
  Receipt Date: 20120514
  Transmission Date: 20120825
  Serious: No
  Sender: FDA-Public Use
  Company Number: None

PATIENT
  Sex: Male
  Weight: 9.2 kg

DRUGS (4)
  1. ETOPOSIDE [Suspect]
     Dosage: 480 MG
  2. G-CSF (FILGRASTIM, AMGEN) [Suspect]
     Dosage: 350 MCG
  3. MELPHALAN HYDROCHLORIDE [Suspect]
     Dosage: 72 MG
  4. CARBOPLATIN [Suspect]
     Dosage: 600 MG

REACTIONS (1)
  - DIARRHOEA [None]
